FAERS Safety Report 21347458 (Version 8)
Quarter: 2024Q2

REPORT INFORMATION
  Report Type: Report from Study
  Country: US (occurrence: US)
  Receive Date: 20220919
  Receipt Date: 20240627
  Transmission Date: 20240716
  Serious: Yes (Other)
  Sender: FDA-Public Use
  Company Number: US-BIOVITRUM-2022US10584

PATIENT
  Age: 14 Year
  Sex: Male
  Weight: 57 kg

DRUGS (11)
  1. KINERET [Suspect]
     Active Substance: ANAKINRA
     Indication: Chronic infantile neurological cutaneous and articular syndrome
     Dosage: 200MG DAILY
     Dates: start: 20130101, end: 20181202
  2. KINERET [Suspect]
     Active Substance: ANAKINRA
     Dosage: 350MG DAILY
     Dates: start: 20181203, end: 20190301
  3. KINERET [Suspect]
     Active Substance: ANAKINRA
     Dosage: 600MG DAILY
     Dates: start: 20190302, end: 20191230
  4. KINERET [Suspect]
     Active Substance: ANAKINRA
     Dosage: 500MG DAILY
     Dates: start: 20191231, end: 20210401
  5. KINERET [Suspect]
     Active Substance: ANAKINRA
     Dosage: 400MG DAILY
     Dates: start: 20210402, end: 20220107
  6. KINERET [Suspect]
     Active Substance: ANAKINRA
     Dosage: 300MG DAILY
     Dates: start: 20220108
  7. INFLIXIMAB [Concomitant]
     Active Substance: INFLIXIMAB
     Indication: Product used for unknown indication
     Dosage: EVERY 8 WEEKS
     Dates: start: 20210201
  8. CALCIUM+ VITAMIN D [Concomitant]
     Indication: Product used for unknown indication
     Dosage: 1500/400 PO DAILY
     Dates: start: 20181207
  9. FERROUS SULFATE [Concomitant]
     Active Substance: FERROUS SULFATE
     Indication: Product used for unknown indication
     Dosage: 325MG, PER DAY
     Dates: start: 20181207
  10. FERROUS SULFATE [Concomitant]
     Active Substance: FERROUS SULFATE
     Dosage: 325MG, PER DAY
     Dates: start: 20181207
  11. FERROUS SULFATE [Concomitant]
     Active Substance: FERROUS SULFATE
     Dosage: 325MG PER DAY
     Dates: start: 20181207

REACTIONS (3)
  - Cutaneous amyloidosis [Not Recovered/Not Resolved]
  - Injection site reaction [Not Recovered/Not Resolved]
  - Injection site nodule [Unknown]

NARRATIVE: CASE EVENT DATE: 20211021
